FAERS Safety Report 25575551 (Version 1)
Quarter: 2025Q3

REPORT INFORMATION
  Report Type: Spontaneous
  Country: US (occurrence: US)
  Receive Date: 20250718
  Receipt Date: 20250718
  Transmission Date: 20251021
  Serious: Yes (Other)
  Sender: SPECGX
  Company Number: US-SPECGX-T202501219

PATIENT
  Age: 47 Year
  Sex: Female

DRUGS (6)
  1. DEXTROAMPHETAMINE SACCHARATE, AMPHETAMINE ASPARTATE, DEXTROAMPHETAMINE [Suspect]
     Active Substance: AMPHETAMINE ASPARTATE\AMPHETAMINE SULFATE\DEXTROAMPHETAMINE SACCHARATE\DEXTROAMPHETAMINE SULFATE
     Indication: Attention deficit hyperactivity disorder
     Dosage: 20 MILLIGRAM, QD
     Route: 065
  2. DILTIAZEM [Suspect]
     Active Substance: DILTIAZEM
     Indication: Angina pectoris
     Dosage: 240 MILLIGRAM, QD
     Route: 048
  3. ISOSORBIDE MONONITRATE [Suspect]
     Active Substance: ISOSORBIDE MONONITRATE
     Indication: Angina pectoris
     Dosage: 30 MILLIGRAM, QD
     Route: 048
  4. DOBUTAMINE [Suspect]
     Active Substance: DOBUTAMINE HYDROCHLORIDE
     Indication: Product used for unknown indication
     Route: 065
  5. ASPIRIN [Concomitant]
     Active Substance: ASPIRIN
     Indication: Antiplatelet therapy
     Route: 065
  6. CLOPIDOGREL [Concomitant]
     Active Substance: CLOPIDOGREL BISULFATE
     Indication: Antiplatelet therapy
     Route: 065

REACTIONS (20)
  - Coronary artery stenosis [Unknown]
  - Coronary artery bypass [Unknown]
  - Ventricular extrasystoles [Unknown]
  - Electrocardiogram ST segment elevation [Recovering/Resolving]
  - Cardiopulmonary bypass [Unknown]
  - Ventricular tachycardia [Unknown]
  - Cardiac arrest [Unknown]
  - Arteriospasm coronary [Unknown]
  - Ventricular hypokinesia [Unknown]
  - Cardiogenic shock [Unknown]
  - Acute kidney injury [Recovering/Resolving]
  - Pneumonia [Unknown]
  - Atrial fibrillation [Unknown]
  - Ischaemia [Unknown]
  - Coronary vascular graft occlusion [Unknown]
  - Intra-aortic balloon placement [Unknown]
  - Temporary mechanical circulatory support [Unknown]
  - Vasoconstriction [Unknown]
  - Hypotension [Unknown]
  - Sinus tachycardia [Unknown]
